FAERS Safety Report 8541763-3 (Version None)
Quarter: 2012Q3

REPORT INFORMATION
  Report Type: 
  Country: None (occurrence: None)
  Receive Date: 20120726
  Receipt Date: 20110831
  Transmission Date: 20120928
  Serious: No
  Sender: FDA-Public Use
  Company Number: US-ASTRAZENECA-2011SE52481

PATIENT
  Age: 52 Year
  Sex: Female
  Weight: 64 kg

DRUGS (8)
  1. XANAX [Concomitant]
  2. ADVAIR DISKUS 100/50 [Concomitant]
  3. ZYRTEC [Concomitant]
     Indication: HYPERSENSITIVITY
  4. ALLEGRA [Concomitant]
     Indication: HYPERSENSITIVITY
  5. ALBUTEROL [Concomitant]
     Indication: RESPIRATORY DISORDER
  6. BENADRYL [Concomitant]
     Indication: HYPERSENSITIVITY
  7. SEROQUEL [Suspect]
     Indication: ANXIETY
     Route: 048
     Dates: start: 20110701, end: 20110801
  8. ADVIL [Concomitant]
     Indication: INSOMNIA

REACTIONS (2)
  - HEADACHE [None]
  - OFF LABEL USE [None]
